FAERS Safety Report 8757779 (Version 3)
Quarter: 2013Q1

REPORT INFORMATION
  Report Type: Spontaneous
  Country: US (occurrence: US)
  Receive Date: 20120828
  Receipt Date: 20130116
  Transmission Date: 20140127
  Serious: Yes (Other)
  Sender: FDA-Public Use
  Company Number: PHEH2012US016719

PATIENT
  Sex: Female

DRUGS (4)
  1. GILENYA [Suspect]
  2. COPLAVIX [Concomitant]
     Dosage: UNK UKN, UNK
  3. INTERFERON [Concomitant]
     Dosage: UNK UKN, UNK
  4. TYSABRI [Concomitant]
     Dosage: UNK UKN, UNK

REACTIONS (3)
  - Amnesia [Not Recovered/Not Resolved]
  - Cognitive disorder [Not Recovered/Not Resolved]
  - Hypersensitivity [Unknown]
